FAERS Safety Report 7104288 (Version 2)
Quarter: 2015Q1

REPORT INFORMATION
  Report Type: Spontaneous
  Country: US (occurrence: None)
  Receive Date: 20090825
  Receipt Date: 20150226
  Transmission Date: 20150721
  Serious: Yes (Hospitalization)
  Sender: FDA-Public Use
  Company Number: TPA2009A01013

PATIENT
  Age: 73 Year
  Sex: Male
  Weight: 80.74 kg

DRUGS (8)
  1. PLAVIX [Concomitant]
     Active Substance: CLOPIDOGREL BISULFATE
  2. FERROUS SULFATE [Concomitant]
     Active Substance: FERROUS SULFATE\FERROUS SULFATE, DRIED
  3. ATENOLOL (ATENOLOL) [Concomitant]
     Active Substance: ATENOLOL
  4. GLYBURIDE (GLIBENCLAMIDE) [Concomitant]
     Active Substance: GLYBURIDE
  5. AGGRENOX (ACETYLSALICYLIC ACID, DIPYRIDAMOLE) [Concomitant]
  6. ACTOS [Suspect]
     Active Substance: PIOGLITAZONE HYDROCHLORIDE
     Indication: TYPE 2 DIABETES MELLITUS
     Dosage: 45 MG, 1 IN 1 D, PER ORAL; 30 MG, 1 IN 1 D, PER ORAL
     Route: 048
     Dates: end: 20090513
  7. ACTOS [Suspect]
     Active Substance: PIOGLITAZONE HYDROCHLORIDE
     Indication: DYSLIPIDAEMIA
     Dosage: 45 MG, 1 IN 1 D, PER ORAL; 30 MG, 1 IN 1 D, PER ORAL
     Route: 048
     Dates: end: 20090513
  8. NIASPAN [Concomitant]
     Active Substance: NIACIN

REACTIONS (8)
  - Pyrexia [None]
  - Dyspnoea [None]
  - Diarrhoea [None]
  - Vomiting [None]
  - Pain [None]
  - Influenza [None]
  - Oedema peripheral [None]
  - Fatigue [None]

NARRATIVE: CASE EVENT DATE: 200904
